FAERS Safety Report 15372775 (Version 1)
Quarter: 2018Q3

REPORT INFORMATION
  Report Type: Spontaneous
  Country: IT (occurrence: IT)
  Receive Date: 20180912
  Receipt Date: 20180912
  Transmission Date: 20181010
  Serious: Yes (Hospitalization)
  Sender: FDA-Public Use
  Company Number: IT-TEVA-2018-IT-952185

PATIENT
  Age: 53 Year
  Sex: Male

DRUGS (7)
  1. METHOTREXATE. [Suspect]
     Active Substance: METHOTREXATE
     Indication: T-CELL TYPE ACUTE LEUKAEMIA
     Dosage: TRIPLE INTRATHECAL THERAPY WAS RE?INITIATED WITH SIX FURTHER ADMINISTRATIONS EVERY 14 DAYS.
     Route: 037
  2. METHOTREXATE. [Suspect]
     Active Substance: METHOTREXATE
     Indication: T-CELL TYPE ACUTE LEUKAEMIA
     Dosage: SECOND INDUCTION WITH A HIGH DOSE OF 5000 MG/SQM OVER 24 H
     Route: 042
  3. CYTOSINE ARABINOSIDE [Suspect]
     Active Substance: CYTARABINE
     Indication: T-CELL TYPE ACUTE LEUKAEMIA
     Dosage: TRIPLE INTRATHECAL THERAPY WAS RE?INITIATED WITH SIX FURTHER ADMINISTRATIONS EVERY 14 DAYS.
     Route: 037
  4. CYTOSINE ARABINOSIDE [Suspect]
     Active Substance: CYTARABINE
     Indication: T-CELL TYPE ACUTE LEUKAEMIA
     Dosage: FOR A TOTAL OF EIGHT DOSES (FIRST INDUCTION OF TRIPLE INTRATHECAL THERAPY)
     Route: 037
  5. DEXAMETASONE [Concomitant]
     Active Substance: DEXAMETHASONE
     Indication: T-CELL TYPE ACUTE LEUKAEMIA
     Dosage: FOR A TOTAL OF EIGHT DOSES
     Route: 037
  6. METHOTREXATE. [Suspect]
     Active Substance: METHOTREXATE
     Indication: T-CELL TYPE ACUTE LEUKAEMIA
     Dosage: FOR A TOTAL OF EIGHT DOSES (FIRST INDUCTION OF TRIPLE INTRATHECAL THERAPY)
     Route: 037
  7. LIPOSOMAL CYTARABINE [Suspect]
     Active Substance: CYTARABINE
     Indication: T-CELL TYPE ACUTE LEUKAEMIA
     Dosage: IN EVERY 15 DAYS, FOR A TOTAL OF FOUR ADMINISTRATIONS
     Route: 065

REACTIONS (7)
  - Blindness [Not Recovered/Not Resolved]
  - Myelopathy [Not Recovered/Not Resolved]
  - Leukoencephalopathy [Not Recovered/Not Resolved]
  - Urinary incontinence [Not Recovered/Not Resolved]
  - Ataxia [Not Recovered/Not Resolved]
  - Demyelination [Not Recovered/Not Resolved]
  - Paraplegia [Not Recovered/Not Resolved]
